FAERS Safety Report 16667678 (Version 1)
Quarter: 2019Q3

REPORT INFORMATION
  Report Type: Spontaneous
  Country: BR (occurrence: BR)
  Receive Date: 20190805
  Receipt Date: 20190805
  Transmission Date: 20191004
  Serious: Yes (Death)
  Sender: FDA-Public Use
  Company Number: BR-PFIZER INC-2019329146

PATIENT
  Age: 6 Year
  Sex: Female

DRUGS (8)
  1. LEUCOVORIN CALCIUM. [Concomitant]
     Active Substance: LEUCOVORIN CALCIUM
     Indication: PRECURSOR B-LYMPHOBLASTIC LYMPHOMA
     Dosage: UNK UNK, CYCLIC, (FIRST TWO CYCLES)
  2. VINCRISTINE [Concomitant]
     Active Substance: VINCRISTINE
     Indication: PRECURSOR B-LYMPHOBLASTIC LYMPHOMA
     Dosage: UNK UNK, CYCLIC,  (FIRST TWO CYCLES)
  3. METHOTREXATE SODIUM. [Suspect]
     Active Substance: METHOTREXATE SODIUM
     Indication: PRECURSOR B-LYMPHOBLASTIC LYMPHOMA
     Dosage: UNK, CYCLIC (HIGH DOSES)
     Route: 037
  4. TENIPOSIDE. [Concomitant]
     Active Substance: TENIPOSIDE
     Indication: PRECURSOR B-LYMPHOBLASTIC LYMPHOMA
     Dosage: UNK UNK, CYCLIC,  (FIRST TWO CYCLES)
  5. METHOTREXATE SODIUM. [Suspect]
     Active Substance: METHOTREXATE SODIUM
     Indication: PRECURSOR B-LYMPHOBLASTIC LYMPHOMA
     Dosage: UNK UNK, CYCLIC (HIGH DOSES)
     Route: 042
  6. CYTOSINE ARABINOSIDE [Concomitant]
     Active Substance: CYTARABINE
     Indication: PRECURSOR B-LYMPHOBLASTIC LYMPHOMA
     Dosage: UNK UNK, CYCLIC,  (FIRST TWO CYCLES)
  7. CYCLOPHOSPHAMIDE. [Concomitant]
     Active Substance: CYCLOPHOSPHAMIDE
     Indication: PRECURSOR B-LYMPHOBLASTIC LYMPHOMA
     Dosage: UNK UNK, CYCLIC,  (FIRST TWO CYCLES)
  8. PREDNISONE. [Concomitant]
     Active Substance: PREDNISONE
     Indication: PRECURSOR B-LYMPHOBLASTIC LYMPHOMA
     Dosage: UNK UNK, CYCLIC,  (FIRST TWO CYCLES)

REACTIONS (3)
  - Leukoencephalopathy [Fatal]
  - Coma [Fatal]
  - Demyelination [Fatal]
